FAERS Safety Report 6340312-8 (Version None)
Quarter: 2009Q3

REPORT INFORMATION
  Report Type: 
  Country: None (occurrence: None)
  Receive Date: 20090902
  Receipt Date: 20090820
  Transmission Date: 20100115
  Serious: Yes (Death)
  Sender: FDA-Public Use
  Company Number: MC200900331

PATIENT
  Age: 77 Year

DRUGS (4)
  1. ANGIOMAX [Suspect]
     Indication: PERCUTANEOUS CORONARY INTERVENTION
     Dosage: 0.75 MG/KG, BOLUS, INTRAVENOUS; 1.75 MG/KG, HR, INTRAVENOUS; 0.25 MG/KG POST PCI, HR, INTRAVENOUS
     Route: 042
  2. ASPIRIN [Concomitant]
  3. PLAVIX [Concomitant]
  4. RAMIPRIL [Concomitant]

REACTIONS (1)
  - NEOPLASM MALIGNANT [None]
